FAERS Safety Report 6234941-X (Version None)
Quarter: 2009Q2

REPORT INFORMATION
  Report Type: 
  Country: None (occurrence: None)
  Receive Date: 20090618
  Receipt Date: 20090617
  Transmission Date: 20091009
  Serious: Yes (Hospitalization)
  Sender: FDA-Public Use
  Company Number: B0575655A

PATIENT
  Age: 63 Year
  Sex: Female

DRUGS (1)
  1. AUGMENTIN '125' [Suspect]
     Indication: INFECTION PROPHYLAXIS
     Route: 042
     Dates: start: 20090430, end: 20090504

REACTIONS (3)
  - ANURIA [None]
  - NEPHROPATHY [None]
  - RENAL FAILURE ACUTE [None]
